FAERS Safety Report 8820908 (Version 1)
Quarter: 2012Q4

REPORT INFORMATION
  Report Type: 
  Country: US (occurrence: US)
  Receive Date: 20121002
  Receipt Date: 20121002
  Transmission Date: 20130627
  Serious: Yes (Hospitalization, Other)
  Sender: FDA-Public Use
  Company Number: US-ROCHE-783848

PATIENT
  Sex: Male
  Weight: 72.64 kg

DRUGS (2)
  1. ACCUTANE [Suspect]
     Indication: ACNE
     Route: 065
     Dates: start: 1995, end: 1996
  2. RETIN-A [Concomitant]

REACTIONS (6)
  - Small intestinal obstruction [Unknown]
  - Colitis ulcerative [Unknown]
  - Inflammatory bowel disease [Unknown]
  - Stress [Unknown]
  - Depression [Unknown]
  - Suicidal ideation [Unknown]
